FAERS Safety Report 4310858-2 (Version None)
Quarter: 2004Q1

REPORT INFORMATION
  Report Type: 
  Country: None (occurrence: None)
  Receive Date: 20040304
  Receipt Date: 20040212
  Transmission Date: 20041129
  Serious: Yes (Hospitalization, Disabling, Other)
  Sender: FDA-Public Use
  Company Number: PHBS2004CA02168

PATIENT
  Age: 32 Year
  Sex: Female

DRUGS (2)
  1. ELIDEL [Suspect]
     Indication: ECZEMA
     Route: 061
     Dates: start: 20040211, end: 20040218
  2. NOVO-CEBASOL [Concomitant]

REACTIONS (3)
  - FACIAL PAIN [None]
  - GLOSSODYNIA [None]
  - PARAESTHESIA ORAL [None]
